FAERS Safety Report 15073397 (Version 1)
Quarter: 2018Q2

REPORT INFORMATION
  Report Type: Spontaneous
  Country: US (occurrence: US)
  Receive Date: 20180627
  Receipt Date: 20180627
  Transmission Date: 20180711
  Serious: No
  Sender: FDA-Public Use
  Company Number: US-PFIZER INC-2018254340

PATIENT
  Sex: Male

DRUGS (1)
  1. ELELYSO [Suspect]
     Active Substance: TALIGLUCERASE ALFA
     Indication: GAUCHER^S DISEASE
     Dosage: 5200 IU, UNK
     Dates: start: 2009

REACTIONS (2)
  - Tartrate-resistant acid phosphatase increased [Unknown]
  - Chitotriosidase increased [Unknown]
